FAERS Safety Report 10141773 (Version 2)
Quarter: 2014Q2

REPORT INFORMATION
  Report Type: Spontaneous
  Country: US (occurrence: US)
  Receive Date: 20140429
  Receipt Date: 20140606
  Transmission Date: 20141212
  Serious: Yes (Other)
  Sender: FDA-Public Use
  Company Number: US-PFIZER INC-2014116625

PATIENT
  Age: 61 Year
  Sex: Female
  Weight: 50 kg

DRUGS (6)
  1. LYRICA [Suspect]
     Indication: NEURALGIA
     Dosage: 25 MG, 2X/DAY
     Dates: start: 201310
  2. LYRICA [Suspect]
     Dosage: 2 CAPSULES OF 25 MG, 2X/DAY
  3. LYRICA [Suspect]
     Dosage: 50 MG, 3X/DAY
  4. LYRICA [Suspect]
     Dosage: UNK
     Dates: end: 201405
  5. TRAZODONE [Concomitant]
     Indication: ANXIETY
     Dosage: 60 MG, DAILY
  6. HYDREA [Concomitant]
     Indication: POLYCYTHAEMIA VERA
     Dosage: 500 MG, ALTERNATE DAY

REACTIONS (1)
  - Huntington^s disease [Unknown]
